FAERS Safety Report 8298337-1 (Version None)
Quarter: 2012Q2

REPORT INFORMATION
  Report Type: 
  Country: None (occurrence: None)
  Receive Date: 20120419
  Receipt Date: 20120412
  Transmission Date: 20120825
  Serious: Yes (Hospitalization)
  Sender: FDA-Public Use
  Company Number: PHHY2012JP029638

PATIENT
  Age: 41 Year
  Sex: Female
  Weight: 62 kg

DRUGS (5)
  1. APRESOLINE [Suspect]
     Indication: GESTATIONAL HYPERTENSION
     Dosage: 30 MG PER DAY
     Route: 048
  2. RITODRINE HYDROCHLORIDE [Concomitant]
  3. APRESOLINE [Suspect]
     Dosage: 120 MG PER DAY
     Route: 048
  4. FLOMOXEF SODIUM [Concomitant]
     Dosage: 2 G, PER DAY
  5. METHYLDOPA [Suspect]
     Dosage: 750 MG, PER DAY

REACTIONS (10)
  - BLOOD CREATININE INCREASED [None]
  - DEHYDRATION [None]
  - PREMATURE LABOUR [None]
  - SPECIFIC GRAVITY URINE DECREASED [None]
  - BLOOD CHLORIDE INCREASED [None]
  - HYPOSTHENURIA [None]
  - GESTATIONAL DIABETES [None]
  - URINE OUTPUT INCREASED [None]
  - MATERNAL EXPOSURE DURING PREGNANCY [None]
  - HYPERNATRAEMIA [None]
